FAERS Safety Report 9586665 (Version 2)
Quarter: 2013Q4

REPORT INFORMATION
  Report Type: Spontaneous
  Country: US (occurrence: US)
  Receive Date: 20131003
  Receipt Date: 20131113
  Transmission Date: 20140711
  Serious: Yes (Hospitalization)
  Sender: FDA-Public Use
  Company Number: US-BAYER-2013-118045

PATIENT
  Age: 28 Year
  Sex: Female

DRUGS (9)
  1. BEYAZ [Suspect]
  2. YAZ [Suspect]
  3. GIANVI [Suspect]
  4. YASMIN [Suspect]
  5. ESCITALOPRAM [Concomitant]
     Indication: DEPRESSION
  6. LEXAPRO [Concomitant]
     Indication: DEPRESSION
  7. FLEXERIL [Concomitant]
  8. MOBIC [Concomitant]
  9. LORATAB [Concomitant]

REACTIONS (3)
  - Deep vein thrombosis [None]
  - Pelvic venous thrombosis [None]
  - Inferior vena caval occlusion [None]
